FAERS Safety Report 8740203 (Version 2)
Quarter: 2012Q4

REPORT INFORMATION
  Report Type: 
  Country: US (occurrence: US)
  Receive Date: 20120823
  Receipt Date: 20121015
  Transmission Date: 20130627
  Serious: Yes (Other)
  Sender: FDA-Public Use
  Company Number: US-PFIZER INC-2012205039

PATIENT
  Sex: Male

DRUGS (1)
  1. CHANTIX [Suspect]
     Dosage: UNK
     Dates: start: 201208, end: 2012

REACTIONS (6)
  - Paranoia [Unknown]
  - Arthropathy [Unknown]
  - Social avoidant behaviour [Unknown]
  - Feeling abnormal [Recovered/Resolved]
  - Fear [Unknown]
  - Emotional distress [Unknown]
